FAERS Safety Report 13066322 (Version 4)
Quarter: 2018Q1

REPORT INFORMATION
  Report Type: Spontaneous
  Country: US (occurrence: US)
  Receive Date: 20161227
  Receipt Date: 20180112
  Transmission Date: 20180508
  Serious: Yes (Hospitalization, Other)
  Sender: FDA-Public Use
  Company Number: US-PFIZER INC-2016583586

PATIENT
  Age: 75 Year
  Sex: Female

DRUGS (1)
  1. XELJANZ [Suspect]
     Active Substance: TOFACITINIB CITRATE
     Dosage: 5 MG, 2X/DAY
     Dates: start: 201606

REACTIONS (6)
  - Kidney infection [Unknown]
  - Arthritis [Unknown]
  - Pneumonia [Unknown]
  - Sinusitis [Unknown]
  - Muscle disorder [Unknown]
  - Fungal infection [Unknown]
